FAERS Safety Report 8118007-X (Version None)
Quarter: 2012Q1

REPORT INFORMATION
  Report Type: 
  Country: None (occurrence: None)
  Receive Date: 20120201
  Receipt Date: 20100805
  Transmission Date: 20120608
  Serious: Yes (Hospitalization, Disabling)
  Sender: FDA-Public Use
  Company Number: 2010002588

PATIENT
  Age: 70 Year
  Sex: Male

DRUGS (8)
  1. CLOPIDOGREL [Suspect]
     Indication: CHEST PAIN
     Dosage: 300 MG (300 MG, 1 IN 1 D)
  2. TEICOPLANIN [Suspect]
     Dosage: 400 MG (400 MG, 1 IN 1 D), INTRAMUSCULAR
     Route: 030
  3. METRONIDAZOLE [Suspect]
     Indication: CHALAZION
     Dosage: 1200 MG (400 MG, 3 IN 1 D)
  4. MEROPENEM [Suspect]
     Dosage: 4 GM (2 GM, 2 IN 1 D)
  5. ERYTHROMYCIN [Suspect]
     Indication: CELLULITIS
     Dosage: 1000 MG (250 MG, 4 IN 1 D), ORAL
     Route: 048
  6. CIPROFLOXACIN [Suspect]
     Indication: CHALAZION
     Dosage: 1500 MG (750 MG, 2 IN 1 D)
  7. WARFARIN SODIUM [Suspect]
     Indication: PULMONARY EMBOLISM
  8. ACETYLSALICYLIC ACID SRT [Suspect]
     Dosage: 300 MG (300 MG, 1 IN 1 D)

REACTIONS (8)
  - EYE PAIN [None]
  - HYPHAEMA [None]
  - INTERNATIONAL NORMALISED RATIO INCREASED [None]
  - INTRAOCULAR PRESSURE INCREASED [None]
  - NAUSEA [None]
  - DRUG INEFFECTIVE [None]
  - HEADACHE [None]
  - POTENTIATING DRUG INTERACTION [None]
